FAERS Safety Report 15955027 (Version 1)
Quarter: 2019Q1

REPORT INFORMATION
  Report Type: Spontaneous
  Country: US (occurrence: US)
  Receive Date: 20190213
  Receipt Date: 20190213
  Transmission Date: 20190417
  Serious: No
  Sender: FDA-Public Use
  Company Number: US-BIOGEN-2019BI00695877

PATIENT
  Age: 61 Year
  Sex: Female

DRUGS (1)
  1. PLEGRIDY [Suspect]
     Active Substance: PEGINTERFERON BETA-1A
     Indication: MULTIPLE SCLEROSIS
     Route: 065
     Dates: start: 201503, end: 20190114

REACTIONS (4)
  - Barrett^s oesophagus [Unknown]
  - Gastrooesophageal reflux disease [Unknown]
  - Injection site urticaria [Unknown]
  - Influenza like illness [Unknown]

NARRATIVE: CASE EVENT DATE: 201810
